FAERS Safety Report 20888924 (Version 1)
Quarter: 2022Q2

REPORT INFORMATION
  Report Type: Report from Study
  Country: BR (occurrence: BR)
  Receive Date: 20220529
  Receipt Date: 20220529
  Transmission Date: 20220721
  Serious: Yes (Other)
  Sender: FDA-Public Use
  Company Number: BR-BIOGEN-2022BI01124977

PATIENT
  Age: 50 Year
  Sex: Female
  Weight: 71 kg

DRUGS (2)
  1. TYSABRI [Suspect]
     Active Substance: NATALIZUMAB
     Indication: Multiple sclerosis
     Route: 042
     Dates: start: 202104
  2. VELIJA (Duloxetine Hydrochloride) [Concomitant]
     Indication: Depression
     Route: 065

REACTIONS (1)
  - Cataract operation [Unknown]

NARRATIVE: CASE EVENT DATE: 20220201
